FAERS Safety Report 21139902 (Version 1)
Quarter: 2022Q3

REPORT INFORMATION
  Report Type: Other
  Country: US (occurrence: US)
  Receive Date: 20220728
  Receipt Date: 20220728
  Transmission Date: 20221027
  Serious: Yes (Other)
  Sender: FDA-Public Use
  Company Number: US-PTx-2022000046

PATIENT
  Age: 14 Year
  Sex: Female

DRUGS (2)
  1. LEUKINE [Suspect]
     Active Substance: SARGRAMOSTIM
     Indication: Brain neoplasm
     Dosage: 250 MCG/M2 SUBCUTANEOUSLY ON DAY 1 AND DAY 2
     Route: 058
  2. PELAREOREP [Suspect]
     Active Substance: PELAREOREP
     Indication: Brain neoplasm
     Dosage: 1;5?108(TCID)50/KG.DOSE LEVELS WERE REDEFINED, WITH REVISED DOSE LEVELS OF 5? 108 TCID50/KG/DOSE.
     Route: 042

REACTIONS (2)
  - Depressed level of consciousness [Unknown]
  - Confusional state [Unknown]
